FAERS Safety Report 4808647-5 (Version None)
Quarter: 2005Q4

REPORT INFORMATION
  Report Type: 
  Country: None (occurrence: None)
  Receive Date: 20051021
  Receipt Date: 20011026
  Transmission Date: 20060501
  Serious: No
  Sender: FDA-Public Use
  Company Number: DE_011007199

PATIENT
  Age: 73 Year
  Sex: Female

DRUGS (4)
  1. ZYPREXA [Suspect]
     Indication: CYCLOTHYMIC DISORDER
     Dosage: 25 MG/DAY
     Dates: start: 20001201
  2. CITALOPRAM HYDROBROMIDE [Concomitant]
  3. ALLOPURINOL [Concomitant]
  4. CARBAMAZEPINE [Concomitant]

REACTIONS (4)
  - CONDITION AGGRAVATED [None]
  - HIP FRACTURE [None]
  - INCORRECT DOSE ADMINISTERED [None]
  - NORMOCHROMIC NORMOCYTIC ANAEMIA [None]
